FAERS Safety Report 5620406-2 (Version None)
Quarter: 2008Q1

REPORT INFORMATION
  Report Type: 
  Country: None (occurrence: None)
  Receive Date: 20080208
  Receipt Date: 20080129
  Transmission Date: 20080703
  Serious: Yes (Other)
  Sender: FDA-Public Use
  Company Number: JP-ELI_LILLY_AND_COMPANY-JP200711000295

PATIENT
  Age: 60 Year
  Sex: Female

DRUGS (4)
  1. HUMALOG [Suspect]
     Dosage: 3 IU, EACH EVENING
     Route: 058
  2. HUMALOG [Suspect]
     Dosage: 5 IU, DAILY (1/D)
     Route: 058
  3. HUMALOG [Suspect]
     Dosage: 6 IU, EACH EVENING
     Route: 058
  4. ISOPHANE INSULIN [Concomitant]
     Dosage: 9 IU, EACH EVENING
     Route: 058

REACTIONS (2)
  - FOOT OPERATION [None]
  - HYPOAESTHESIA [None]
